FAERS Safety Report 10775664 (Version 1)
Quarter: 2015Q1

REPORT INFORMATION
  Report Type: Spontaneous
  Country: JP (occurrence: US)
  Receive Date: 20150209
  Receipt Date: 20150209
  Transmission Date: 20150721
  Serious: Yes (Other)
  Sender: FDA-Public Use
  Company Number: US-BAUSCH-BL-2015-001756

PATIENT
  Age: 61 Year
  Sex: Male
  Weight: 65.06 kg

DRUGS (3)
  1. VISUDYNE [Suspect]
     Active Substance: VERTEPORFIN
     Indication: AGE-RELATED MACULAR DEGENERATION
     Route: 042
     Dates: start: 20050106, end: 20050106
  2. METHYCOBAL [Concomitant]
     Active Substance: METHYLCOBALAMIN
     Indication: HAEMORRHAGE PROPHYLAXIS
     Dates: start: 20041213
  3. SOLANTAL [Concomitant]
     Active Substance: TIARAMIDE
     Indication: ANTIINFLAMMATORY THERAPY
     Dates: start: 20041213

REACTIONS (3)
  - Disease progression [Recovered/Resolved with Sequelae]
  - Fibrosis [Recovered/Resolved with Sequelae]
  - Eye haemorrhage [Recovered/Resolved with Sequelae]

NARRATIVE: CASE EVENT DATE: 20051201
